FAERS Safety Report 23850045 (Version 1)
Quarter: 2024Q2

REPORT INFORMATION
  Report Type: Spontaneous
  Country: US (occurrence: None)
  Receive Date: 20240513
  Receipt Date: 20240513
  Transmission Date: 20240715
  Serious: Yes (Hospitalization)
  Sender: FDA-Public Use
  Company Number: None

PATIENT
  Age: 54 Year
  Sex: Female

DRUGS (2)
  1. TALTZ [Suspect]
     Active Substance: IXEKIZUMAB
     Indication: Psoriatic arthropathy
     Dosage: DIRECTIONS: INJECT 1 PEN UNDER THE SKIN EVERY 2 WEEKS (WEEKS 4, 6, 8, 10). THEN STARTING AT WEEK 12
     Route: 058
     Dates: start: 202206
  2. TALTZ [Suspect]
     Active Substance: IXEKIZUMAB
     Indication: Psoriasis

REACTIONS (3)
  - Anxiety [None]
  - Agoraphobia [None]
  - Therapy interrupted [None]

NARRATIVE: CASE EVENT DATE: 20240201
